FAERS Safety Report 10018929 (Version 1)
Quarter: 2014Q1

REPORT INFORMATION
  Report Type: Spontaneous
  Country: US (occurrence: US)
  Receive Date: 20140318
  Receipt Date: 20140318
  Transmission Date: 20141002
  Serious: Yes (Hospitalization)
  Sender: FDA-Public Use
  Company Number: US-GLAXOSMITHKLINE-A1064325A

PATIENT
  Age: 50 Year
  Sex: Female

DRUGS (7)
  1. POTIGA [Suspect]
     Indication: CONVULSION
     Dosage: 800MG SEE DOSAGE TEXT
     Route: 048
     Dates: start: 201207
  2. LOVENOX [Concomitant]
  3. AMITRIPTYLINE [Concomitant]
  4. TOPAMAX [Concomitant]
  5. SYNTHROID [Concomitant]
  6. ATENOLOL [Concomitant]
  7. XENICAL [Concomitant]

REACTIONS (3)
  - Road traffic accident [Unknown]
  - Spinal fusion surgery [Unknown]
  - Arthritis [Unknown]
